FAERS Safety Report 8390381-9 (Version None)
Quarter: 2012Q2

REPORT INFORMATION
  Report Type: 
  Country: None (occurrence: None)
  Receive Date: 20120529
  Receipt Date: 20120521
  Transmission Date: 20120825
  Serious: Yes (Hospitalization, Other)
  Sender: FDA-Public Use
  Company Number: US-PFIZER INC-2012019971

PATIENT
  Sex: Male
  Weight: 127 kg

DRUGS (1)
  1. BENEFIX [Suspect]
     Indication: FACTOR IX DEFICIENCY
     Dosage: UNK, 3X/WEEK
     Route: 058

REACTIONS (2)
  - ARTHRITIS INFECTIVE [None]
  - HEPATIC FAILURE [None]
